FAERS Safety Report 25947502 (Version 2)
Quarter: 2025Q4

REPORT INFORMATION
  Report Type: Report from Study
  Country: US (occurrence: US)
  Receive Date: 20251022
  Receipt Date: 20251113
  Transmission Date: 20260118
  Serious: Yes (Other)
  Sender: MALLINCKRODT
  Company Number: US-MALLINCKRODT-MNK202506383

PATIENT
  Sex: Female

DRUGS (5)
  1. CORTICOTROPIN [Suspect]
     Active Substance: CORTICOTROPIN
     Indication: Polymyositis
     Dosage: 40 UNITS
     Dates: start: 20210415
  2. CORTICOTROPIN [Suspect]
     Active Substance: CORTICOTROPIN
     Indication: Polymyositis
  3. METHOTREXATE [Suspect]
     Active Substance: METHOTREXATE
     Indication: Product used for unknown indication
     Dosage: UNKNOWN
     Route: 048
  4. METHOTREXATE [Suspect]
     Active Substance: METHOTREXATE
     Dosage: UNKNOWN
  5. METOPROLOL [Concomitant]
     Active Substance: METOPROLOL
     Dosage: UNKNOWN

REACTIONS (6)
  - Ventricular tachycardia [Not Recovered/Not Resolved]
  - Shoulder arthroplasty [Unknown]
  - Dyspnoea [Unknown]
  - Adverse drug reaction [Unknown]
  - Rash [Unknown]
  - Fatigue [Unknown]
